FAERS Safety Report 4593082-8 (Version None)
Quarter: 2005Q1

REPORT INFORMATION
  Report Type: 
  Country: None (occurrence: None)
  Receive Date: 20050301
  Receipt Date: 20040831
  Transmission Date: 20050727
  Serious: Yes (Other)
  Sender: FDA-Public Use
  Company Number: JP-SOLVAY-00304003016

PATIENT
  Sex: Female
  Weight: 47 kg

DRUGS (6)
  1. FLUVOXAMINE MALEATE [Suspect]
     Indication: DEPRESSION
     Dosage: DAILY DOSE: 100 MG. FREQUENCY:UNKNOWN
     Route: 048
     Dates: start: 20040101
  2. DOGMATYL [Concomitant]
     Indication: STOMACH DISCOMFORT
     Dosage: DAILY DOSE: 150 MG. FREQUENCY:UNKNOWN
     Route: 048
     Dates: start: 20040101
  3. TERNELIN [Interacting]
     Indication: MUSCULAR WEAKNESS
     Dosage: DAILY DOSE: 3 MILLIGRAM(S)
     Route: 048
     Dates: start: 20040824, end: 20040831
  4. LENDORM [Concomitant]
     Indication: INSOMNIA
     Dosage: DAILY DOSE: 1 MILLIGRAM(S)
     Route: 048
     Dates: start: 20040101
  5. MEILAX [Concomitant]
     Indication: ANXIETY
     Dosage: DAILY DOSE: 3 MILLIGRAM(S)
     Route: 048
     Dates: start: 20040810, end: 20040829
  6. GOSHA-JINKI-GAN [Concomitant]
     Indication: ILL-DEFINED DISORDER
     Dosage: DAILY DOSE: 7.5 GRAM(S)
     Route: 048
     Dates: start: 20040713

REACTIONS (4)
  - DRUG INTERACTION [None]
  - FALL [None]
  - MUSCULAR WEAKNESS [None]
  - ORTHOSTATIC HYPOTENSION [None]
